FAERS Safety Report 24582387 (Version 1)
Quarter: 2024Q4

REPORT INFORMATION
  Report Type: Spontaneous
  Country: US (occurrence: US)
  Receive Date: 20241106
  Receipt Date: 20241106
  Transmission Date: 20250115
  Serious: Yes (Hospitalization, Other)
  Sender: ACCORD
  Company Number: US-Accord-440317

PATIENT
  Age: 56 Year
  Sex: Female

DRUGS (3)
  1. FINGOLIMOD [Suspect]
     Active Substance: FINGOLIMOD
     Indication: Multiple sclerosis
  2. AMPHOTERICIN B [Concomitant]
     Active Substance: AMPHOTERICIN B
     Indication: Antibiotic therapy
     Route: 042
  3. VORICONAZOLE [Concomitant]
     Active Substance: VORICONAZOLE
     Indication: Antibiotic therapy

REACTIONS (2)
  - Coccidioidomycosis [Unknown]
  - Central nervous system infection [Unknown]
